FAERS Safety Report 11442796 (Version 1)
Quarter: 2015Q3

REPORT INFORMATION
  Report Type: Spontaneous
  Country: US (occurrence: US)
  Receive Date: 20150901
  Receipt Date: 20150901
  Transmission Date: 20151125
  Serious: Yes (Other)
  Sender: FDA-Public Use
  Company Number: US-BAYER-2015-408589

PATIENT
  Age: 85 Year
  Sex: Male
  Weight: 77.98 kg

DRUGS (2)
  1. BAYER LOW DOSE [Concomitant]
     Active Substance: ASPIRIN
  2. LOTRIMIN AF ANTIFUNGAL [Suspect]
     Active Substance: MICONAZOLE NITRATE
     Indication: TINEA CRURIS
     Dosage: 1 U, BID
     Route: 061
     Dates: start: 20150823, end: 20150824

REACTIONS (2)
  - Blister [Not Recovered/Not Resolved]
  - Blood blister [Recovered/Resolved]

NARRATIVE: CASE EVENT DATE: 20150824
